FAERS Safety Report 13366288 (Version 2)
Quarter: 2017Q2

REPORT INFORMATION
  Report Type: Spontaneous
  Country: DE (occurrence: DE)
  Receive Date: 20170323
  Receipt Date: 20170428
  Transmission Date: 20170830
  Serious: Yes (Other)
  Sender: FDA-Public Use
  Company Number: DE-TEVA-750076GER

PATIENT
  Sex: Male
  Weight: 95 kg

DRUGS (8)
  1. VALSARTAN DURA [Suspect]
     Active Substance: VALSARTAN
     Indication: VASCULAR GRAFT
     Dosage: 80 MILLIGRAM DAILY;
     Route: 048
     Dates: start: 201609
  2. LORA-ADGC [Concomitant]
  3. BISOPROLOL-RATIOPHARM 5 MG TABLETTEN [Suspect]
     Active Substance: BISOPROLOL
     Route: 048
     Dates: start: 201507
  4. SIMVASTATIN 20 MG [Concomitant]
     Active Substance: SIMVASTATIN
     Dosage: 20 MILLIGRAM DAILY;
  5. PANTOPRAZOL 20 MG [Concomitant]
     Active Substance: PANTOPRAZOLE SODIUM
     Dosage: 20 MILLIGRAM DAILY;
  6. TOUJEO [Concomitant]
     Active Substance: INSULIN GLARGINE
  7. CLOPIDOGREL 75 ZENTIVA [Suspect]
     Active Substance: CLOPIDOGREL BISULFATE
     Indication: CORONARY ARTERIAL STENT INSERTION
     Dosage: 75 MILLIGRAM DAILY;
     Route: 048
     Dates: start: 2001
  8. BISOPROLOL-RATIOPHARM 5 MG TABLETTEN [Suspect]
     Active Substance: BISOPROLOL
     Indication: VASCULAR GRAFT
     Dosage: 5 MILLIGRAM DAILY; USAGE WITH INTERRUPTIONS
     Route: 048

REACTIONS (21)
  - Blood pressure decreased [Not Recovered/Not Resolved]
  - Blood pressure orthostatic decreased [None]
  - Dysphagia [Not Recovered/Not Resolved]
  - Fatigue [Not Recovered/Not Resolved]
  - Asthenia [Not Recovered/Not Resolved]
  - Asthma [Not Recovered/Not Resolved]
  - Blood glucose abnormal [Not Recovered/Not Resolved]
  - Psoriasis [Not Recovered/Not Resolved]
  - Headache [Not Recovered/Not Resolved]
  - Dyspnoea [Not Recovered/Not Resolved]
  - Pruritus [Not Recovered/Not Resolved]
  - Sleep disorder [Not Recovered/Not Resolved]
  - Chronic obstructive pulmonary disease [Not Recovered/Not Resolved]
  - Swelling [Not Recovered/Not Resolved]
  - Arthralgia [Not Recovered/Not Resolved]
  - Rash [Not Recovered/Not Resolved]
  - Nausea [Not Recovered/Not Resolved]
  - Hypoacusis [Not Recovered/Not Resolved]
  - Delirium [Unknown]
  - Dizziness [Not Recovered/Not Resolved]
  - Rhinitis allergic [Not Recovered/Not Resolved]
